FAERS Safety Report 8599434 (Version 6)
Quarter: 2014Q3

REPORT INFORMATION
  Report Type: Spontaneous
  Country: JP (occurrence: JP)
  Receive Date: 20120605
  Receipt Date: 20140812
  Transmission Date: 20150326
  Serious: Yes (Death, Hospitalization, Other)
  Sender: FDA-Public Use
  Company Number: PHHY2012JP046230

PATIENT
  Age: 66 Year
  Sex: Female
  Weight: 60.5 kg

DRUGS (46)
  1. BERAPROST SODIUM [Concomitant]
     Active Substance: BERAPROST SODIUM
     Dosage: 120 UG, UNK
     Dates: start: 200811
  2. BOSENTAN MONOHYDRATE [Concomitant]
     Active Substance: BOSENTAN\BOSENTAN MONOHYDRATE
     Dosage: 250 MG, UNK
     Dates: start: 200902
  3. SILDENAFIL CITRATE. [Concomitant]
     Active Substance: SILDENAFIL CITRATE
     Dosage: 60 MG, UNK
     Dates: start: 200811
  4. SILDENAFIL CITRATE. [Concomitant]
     Active Substance: SILDENAFIL CITRATE
     Dosage: 60 UNK, UNK
     Dates: start: 200911
  5. REVATIO [Concomitant]
     Active Substance: SILDENAFIL CITRATE
     Indication: PULMONARY ARTERIAL HYPERTENSION
     Dosage: 60 MG, UNK
     Route: 048
     Dates: start: 20081130, end: 20100320
  6. JUVELA N [Concomitant]
     Active Substance: TOCOPHERYL NICOTINATE, D-.ALPHA.
     Indication: SCLERODERMA
     Dosage: 600 MG, UNK
     Route: 048
     Dates: start: 20081130, end: 20100320
  7. GLIVEC [Suspect]
     Active Substance: IMATINIB MESYLATE
     Indication: SYSTEMIC SCLEROSIS
     Dosage: 200 MG, DAILY
     Route: 048
     Dates: start: 20091107
  8. GLIVEC [Suspect]
     Active Substance: IMATINIB MESYLATE
     Dosage: 100 MG, DAILY
     Route: 048
     Dates: start: 20091217, end: 20091222
  9. BERAPROST SODIUM [Concomitant]
     Active Substance: BERAPROST SODIUM
     Dosage: 120 UG, UNK
     Dates: start: 200801
  10. BOSENTAN MONOHYDRATE [Concomitant]
     Active Substance: BOSENTAN\BOSENTAN MONOHYDRATE
     Dosage: 250 MG
     Route: 048
  11. TRACLEER [Concomitant]
     Active Substance: BOSENTAN\BOSENTAN MONOHYDRATE
     Indication: PULMONARY ARTERIAL HYPERTENSION
     Dosage: 250 MG, UNK
     Route: 048
     Dates: start: 20081130, end: 20100320
  12. ALDACTONE [Concomitant]
     Active Substance: SPIRONOLACTONE
     Indication: RIGHT VENTRICULAR FAILURE
     Dosage: 25 MG, UNK
     Route: 048
     Dates: start: 200811, end: 20100320
  13. ACARDI [Concomitant]
     Indication: RIGHT VENTRICULAR FAILURE
     Dosage: 1.25 MG, UNK
     Route: 048
     Dates: start: 20100208, end: 20100320
  14. EPOPROSTENOL [Concomitant]
     Active Substance: EPOPROSTENOL
  15. BERAPROST SODIUM [Concomitant]
     Active Substance: BERAPROST SODIUM
     Dosage: 120 UG, UNK
     Dates: start: 200905
  16. BERAPROST SODIUM [Concomitant]
     Active Substance: BERAPROST SODIUM
     Dosage: 120 MG, UNK
     Dates: start: 200911
  17. BOSENTAN MONOHYDRATE [Concomitant]
     Active Substance: BOSENTAN\BOSENTAN MONOHYDRATE
     Dosage: 125 MG, UNK
     Dates: start: 200801
  18. SILDENAFIL CITRATE. [Concomitant]
     Active Substance: SILDENAFIL CITRATE
     Dosage: 60 MG, UNK
     Dates: start: 200905
  19. GLIVEC [Suspect]
     Active Substance: IMATINIB MESYLATE
     Indication: PULMONARY ARTERIAL HYPERTENSION
     Dosage: 100 MG, DAILY
     Route: 048
     Dates: start: 20081130
  20. CARELOAD [Suspect]
     Active Substance: BERAPROST SODIUM
     Indication: PULMONARY ARTERIAL HYPERTENSION
     Dosage: 120 MG, DAILY
     Route: 048
     Dates: start: 20100201, end: 20100225
  21. BERAPROST SODIUM [Concomitant]
     Active Substance: BERAPROST SODIUM
     Indication: PERIPHERAL VASCULAR DISORDER
     Dosage: 120 UG
     Route: 065
     Dates: start: 200703
  22. BERAPROST SODIUM [Concomitant]
     Active Substance: BERAPROST SODIUM
     Dosage: 120 UG, UNK
     Dates: start: 200807
  23. BOSENTAN MONOHYDRATE [Concomitant]
     Active Substance: BOSENTAN\BOSENTAN MONOHYDRATE
     Dosage: 250 MG, UNK
     Dates: start: 201002
  24. BOSENTAN MONOHYDRATE [Concomitant]
     Active Substance: BOSENTAN\BOSENTAN MONOHYDRATE
     Dosage: 125 MG, PER DAY
  25. GASMOTIN [Concomitant]
     Active Substance: MOSAPRIDE CITRATE
     Indication: PROPHYLAXIS AGAINST GASTROINTESTINAL ULCER
     Dosage: 15 MG, UNK
     Route: 048
     Dates: start: 20081130, end: 20100320
  26. BAYASPIRIN [Suspect]
     Active Substance: ASPIRIN
     Indication: SCLERODERMA
     Dosage: 100 MG, DAILY
     Route: 048
     Dates: start: 20081130, end: 20091228
  27. ASPIRIN. [Concomitant]
     Active Substance: ASPIRIN
     Dosage: UNK UKN, UNK
     Route: 048
  28. BOSENTAN MONOHYDRATE [Concomitant]
     Active Substance: BOSENTAN\BOSENTAN MONOHYDRATE
     Dosage: 250 MG, UNK
     Dates: start: 200911
  29. THYRADIN [Concomitant]
     Active Substance: LEVOTHYROXINE
     Indication: HYPOTHYROIDISM
     Dosage: 50 MG, UNK
     Route: 048
     Dates: start: 20081130, end: 20100320
  30. SARPOGRELATE HYDROCHLORIDE [Concomitant]
     Active Substance: SARPOGRELATE
     Route: 048
  31. BERAPROST SODIUM [Concomitant]
     Active Substance: BERAPROST SODIUM
     Dosage: 120 UG, UNK
     Dates: start: 200902
  32. BOSENTAN MONOHYDRATE [Concomitant]
     Active Substance: BOSENTAN\BOSENTAN MONOHYDRATE
     Dosage: 250 MG, UNK
     Dates: start: 200905
  33. SILDENAFIL CITRATE. [Concomitant]
     Active Substance: SILDENAFIL CITRATE
     Dosage: 60 MG
     Route: 048
  34. LASIX [Concomitant]
     Active Substance: FUROSEMIDE
     Indication: RIGHT VENTRICULAR FAILURE
     Dosage: 60 MG, UNK
     Route: 048
     Dates: start: 200811, end: 20100320
  35. PARIET [Concomitant]
     Active Substance: RABEPRAZOLE SODIUM
     Indication: PROPHYLAXIS AGAINST GASTROINTESTINAL ULCER
     Dosage: 10 MG, UNK
     Route: 048
     Dates: start: 20081130, end: 20100320
  36. OPALMON [Suspect]
     Active Substance: LIMAPROST
     Indication: SCLERODERMA
     Dosage: 15 MG, DAILY
     Route: 048
     Dates: start: 20081130, end: 20091228
  37. BOSENTAN MONOHYDRATE [Concomitant]
     Active Substance: BOSENTAN\BOSENTAN MONOHYDRATE
     Dosage: 125 MG, UNK
     Dates: start: 200807
  38. SILDENAFIL CITRATE. [Concomitant]
     Active Substance: SILDENAFIL CITRATE
     Dosage: 60 MG, UNK
     Dates: start: 200802
  39. GLIVEC [Suspect]
     Active Substance: IMATINIB MESYLATE
     Dosage: 100 MG, DAILY
     Route: 048
     Dates: start: 20100206, end: 20100320
  40. ANPLAG [Suspect]
     Active Substance: SARPOGRELATE
     Indication: SCLERODERMA
     Dosage: 300 MG, DAILY
     Route: 048
     Dates: start: 20081130, end: 20091228
  41. BERAPROST SODIUM [Concomitant]
     Active Substance: BERAPROST SODIUM
     Dosage: 120 UG, UNK
     Dates: start: 201002
  42. BOSENTAN MONOHYDRATE [Concomitant]
     Active Substance: BOSENTAN\BOSENTAN MONOHYDRATE
     Dosage: 250 MG, UNK
     Dates: start: 200811
  43. SILDENAFIL CITRATE. [Concomitant]
     Active Substance: SILDENAFIL CITRATE
     Dosage: 75 MG, UNK
     Dates: start: 200807
  44. SILDENAFIL CITRATE. [Concomitant]
     Active Substance: SILDENAFIL CITRATE
     Dosage: 60 MG, UNK
     Dates: start: 201002
  45. MUCOSTA [Concomitant]
     Active Substance: REBAMIPIDE
     Indication: PROPHYLAXIS AGAINST GASTROINTESTINAL ULCER
     Dosage: 300 MG, UNK
     Route: 048
     Dates: start: 20081130, end: 20100320
  46. CINAL [Concomitant]
     Active Substance: ASCORBIC ACID\CALCIUM PANTOTHENATE
     Indication: SCLERODERMA
     Dosage: 6 DF, UNK
     Route: 048
     Dates: start: 20081130, end: 20100320

REACTIONS (16)
  - Head injury [Unknown]
  - Renal impairment [Unknown]
  - Pulmonary hypertension [Unknown]
  - Subdural haematoma [Fatal]
  - Tremor [Fatal]
  - Depressed level of consciousness [Fatal]
  - Subdural haemorrhage [Fatal]
  - Contusion [Unknown]
  - Fall [Unknown]
  - Gait disturbance [Fatal]
  - Right ventricular failure [Unknown]
  - Paresis [Fatal]
  - Loss of consciousness [Fatal]
  - Oedema peripheral [Not Recovered/Not Resolved]
  - Presyncope [Fatal]
  - Headache [Fatal]

NARRATIVE: CASE EVENT DATE: 200812
